FAERS Safety Report 7524085-9 (Version None)
Quarter: 2011Q2

REPORT INFORMATION
  Report Type: 
  Country: None (occurrence: None)
  Receive Date: 20110606
  Receipt Date: 20110601
  Transmission Date: 20111010
  Serious: Yes (Life-Threatening, Hospitalization, Other)
  Sender: FDA-Public Use
  Company Number: IT-BIOGENIDEC-2011BI007776

PATIENT
  Age: 32 Year
  Sex: Male

DRUGS (7)
  1. LANTUS [Concomitant]
     Indication: TYPE 1 DIABETES MELLITUS
  2. TYSABRI [Suspect]
     Route: 042
     Dates: start: 20100416
  3. TYSABRI [Suspect]
     Indication: RELAPSING-REMITTING MULTIPLE SCLEROSIS
     Route: 042
     Dates: start: 20100312
  4. HUMALOG [Concomitant]
  5. HUMALOG [Concomitant]
     Indication: TYPE 1 DIABETES MELLITUS
  6. HUMALOG [Concomitant]
     Indication: TYPE 1 DIABETES MELLITUS
  7. TYSABRI [Suspect]
     Route: 042
     Dates: start: 20100521

REACTIONS (1)
  - HYPOGLYCAEMIA [None]
